FAERS Safety Report 5593263-0 (Version None)
Quarter: 2008Q1

REPORT INFORMATION
  Report Type: 
  Country: None (occurrence: None)
  Receive Date: 20080115
  Receipt Date: 20080115
  Transmission Date: 20080703
  Serious: Yes (Death)
  Sender: FDA-Public Use
  Company Number: None

PATIENT
  Age: 2 Month
  Sex: Male
  Weight: 2 kg

DRUGS (2)
  1. NEOPROFEN [Suspect]
     Indication: PATENT DUCTUS ARTERIOSUS
     Dosage: 7 MG ONCE PO
     Route: 048
     Dates: start: 20071122, end: 20071124
  2. NEOPROFEN [Suspect]
     Dosage: 3.5 MG DAILY X 2 PO
     Route: 048

REACTIONS (1)
  - NECROTISING COLITIS [None]
